FAERS Safety Report 7148845-1 (Version None)
Quarter: 2010Q4

REPORT INFORMATION
  Report Type: 
  Country: None (occurrence: None)
  Receive Date: 20101209
  Receipt Date: 20101203
  Transmission Date: 20110411
  Serious: Yes (Other)
  Sender: FDA-Public Use
  Company Number: PHHY2010FR77327

PATIENT
  Sex: Female
  Weight: 64 kg

DRUGS (6)
  1. STALEVO 100 [Suspect]
     Indication: PARKINSON'S DISEASE
     Dosage: 1 DF, TID
     Dates: start: 20100301
  2. LYRICA [Suspect]
     Indication: HERPES ZOSTER
     Dosage: 50 IN THE MORNING AND 150 IN THE EVENING
     Dates: start: 20100501
  3. LYRICA [Suspect]
     Indication: POST HERPETIC NEURALGIA
     Dosage: 50 MG, BID
  4. ARICEPT [Concomitant]
     Indication: DEMENTIA ALZHEIMER'S TYPE
     Dosage: UNK
  5. MEPRONIZINE [Concomitant]
     Dosage: UNK
     Dates: end: 20100901
  6. DEROXAT [Concomitant]
     Dosage: 20 MG, BID

REACTIONS (5)
  - BLOOD AMYLASE INCREASED [None]
  - HERPES ZOSTER OPHTHALMIC [None]
  - LIPASE INCREASED [None]
  - PANCREATIC ENZYMES INCREASED [None]
  - POST HERPETIC NEURALGIA [None]
